FAERS Safety Report 10145294 (Version 1)
Quarter: 2014Q2

REPORT INFORMATION
  Report Type: Spontaneous
  Country: US (occurrence: US)
  Receive Date: 20140501
  Receipt Date: 20140501
  Transmission Date: 20141212
  Serious: No
  Sender: FDA-Public Use
  Company Number: US-BIOGENIDEC-2014BI037528

PATIENT
  Age: 66 Year
  Sex: Female

DRUGS (8)
  1. TECFIDERA [Suspect]
     Indication: MULTIPLE SCLEROSIS
     Route: 048
  2. ASPIRIN LOW DOSE [Concomitant]
  3. BACLOFEN [Concomitant]
  4. CYMBALTA [Concomitant]
  5. LEVOTHYROXINE SODIUM [Concomitant]
  6. LORTAB [Concomitant]
  7. OMEPRAZOLE [Concomitant]
  8. VITAMIN D [Concomitant]

REACTIONS (2)
  - Flatulence [Unknown]
  - Dyspepsia [Unknown]
